FAERS Safety Report 9167726 (Version 3)
Quarter: 2014Q2

REPORT INFORMATION
  Report Type: Spontaneous
  Country: CN (occurrence: None)
  Receive Date: 20130307
  Receipt Date: 20140514
  Transmission Date: 20141212
  Serious: Yes (Hospitalization, Other)
  Sender: FDA-Public Use
  Company Number: VAL_01443_2013

PATIENT
  Age: 57 Year
  Sex: Male

DRUGS (3)
  1. LOTENSIN (00909102) (LOTENSIN-BENAZEPRIL HYDROCHLORIDE) (NOT SPECIFIED) [Suspect]
     Indication: HYPERTENSION
     Dosage: (10 MG QD, [EVERY NIGHT] ORAL)
     Route: 048
     Dates: start: 20130201, end: 20130224
  2. NIFEDIPINE [Concomitant]
  3. AMLODIPINE [Concomitant]

REACTIONS (6)
  - Tinnitus [None]
  - Dyspnoea [None]
  - Throat tightness [None]
  - Blood pressure systolic increased [None]
  - Hypersensitivity [None]
  - Drug hypersensitivity [None]
